FAERS Safety Report 14268424 (Version 2)
Quarter: 2018Q1

REPORT INFORMATION
  Report Type: Spontaneous
  Country: US (occurrence: US)
  Receive Date: 20171211
  Receipt Date: 20180104
  Transmission Date: 20180508
  Serious: No
  Sender: FDA-Public Use
  Company Number: US-GLAXOSMITHKLINE-US2017188321

PATIENT
  Sex: Female
  Weight: 92.63 kg

DRUGS (1)
  1. NUCALA [Suspect]
     Active Substance: MEPOLIZUMAB
     Indication: ASTHMA
     Dosage: 100 MG, UNK
     Route: 042
     Dates: start: 20171021, end: 20171129

REACTIONS (3)
  - Abdominal pain [Unknown]
  - Lymphadenopathy [Unknown]
  - Headache [Unknown]
